FAERS Safety Report 12703496 (Version 3)
Quarter: 2016Q4

REPORT INFORMATION
  Report Type: Spontaneous
  Country: JP (occurrence: JP)
  Receive Date: 20160831
  Receipt Date: 20161104
  Transmission Date: 20170207
  Serious: Yes (Death, Other)
  Sender: FDA-Public Use
  Company Number: JP-JNJFOC-20160822201

PATIENT
  Age: 74 Year
  Sex: Male

DRUGS (2)
  1. IMBRUVICA [Suspect]
     Active Substance: IBRUTINIB
     Indication: CHRONIC LYMPHOCYTIC LEUKAEMIA
     Route: 048
     Dates: start: 20160531, end: 20160927
  2. FINIBAX [Concomitant]
     Active Substance: DORIPENEM MONOHYDRATE
     Route: 065
     Dates: start: 20160531, end: 20160927

REACTIONS (5)
  - Pleural effusion [Recovered/Resolved]
  - Chronic lymphocytic leukaemia [Fatal]
  - Diarrhoea [Not Recovered/Not Resolved]
  - Anaphylactic reaction [Recovered/Resolved]
  - Pyrexia [Recovered/Resolved]

NARRATIVE: CASE EVENT DATE: 2016
